FAERS Safety Report 10261518 (Version 2)
Quarter: 2014Q2

REPORT INFORMATION
  Report Type: Spontaneous
  Country: US (occurrence: US)
  Receive Date: 20140626
  Receipt Date: 20140626
  Transmission Date: 20141212
  Serious: No
  Sender: FDA-Public Use
  Company Number: US-MYLANLABS-2013S1025408

PATIENT
  Age: 81 Year
  Sex: Female
  Weight: 46.72 kg

DRUGS (9)
  1. PERFOROMIST (FORMOTEROL FUMARATE) INHALATION SOLUTION [Suspect]
     Indication: EMPHYSEMA
     Route: 055
     Dates: start: 20131105
  2. ADVAIR [Concomitant]
     Route: 055
     Dates: end: 20131105
  3. SPIRIVA [Concomitant]
     Route: 055
  4. VITAMIN D [Concomitant]
  5. OMEPRAZOLE [Concomitant]
  6. DALIRESP [Concomitant]
  7. ACEBUTOLOL [Concomitant]
  8. ALPRAZOLAM [Concomitant]
  9. MUCINEX [Concomitant]
     Dosage: BID TO TID

REACTIONS (1)
  - Dry mouth [Recovered/Resolved]
